FAERS Safety Report 7407804-1 (Version None)
Quarter: 2011Q1

REPORT INFORMATION
  Report Type: 
  Country: None (occurrence: None)
  Receive Date: 20110330
  Receipt Date: 20110316
  Transmission Date: 20110831
  Serious: Yes (Hospitalization)
  Sender: FDA-Public Use
  Company Number: 029112

PATIENT
  Sex: Male
  Weight: 47.2 kg

DRUGS (7)
  1. CERTOLIZUMAB PEGOL [Suspect]
     Indication: CROHN'S DISEASE
     Dosage: 400 MG, 1X/4 WEEKS, SUBCUTANEOUS
     Route: 058
     Dates: start: 20050127, end: 20110120
  2. MV [Concomitant]
  3. CLARITIN-D [Concomitant]
  4. ACTONEL [Concomitant]
  5. NICODERM [Concomitant]
  6. CALCIUM D [Concomitant]
  7. B-12 LATINO [Concomitant]

REACTIONS (13)
  - CHILLS [None]
  - CHEST PAIN [None]
  - LUNG CONSOLIDATION [None]
  - LUNG INFECTION PSEUDOMONAL [None]
  - HYPOVOLAEMIA [None]
  - WEIGHT INCREASED [None]
  - CHRONIC OBSTRUCTIVE PULMONARY DISEASE [None]
  - MUSCULOSKELETAL PAIN [None]
  - ANAEMIA [None]
  - RENAL FAILURE ACUTE [None]
  - PNEUMONIA BACTERIAL [None]
  - METABOLIC ACIDOSIS [None]
  - HYPOTENSION [None]
